FAERS Safety Report 15561774 (Version 1)
Quarter: 2018Q4

REPORT INFORMATION
  Report Type: Spontaneous
  Country: US (occurrence: US)
  Receive Date: 20181029
  Receipt Date: 20181029
  Transmission Date: 20190205
  Serious: No
  Sender: FDA-Public Use
  Company Number: US-SA-2018SA293414

PATIENT
  Sex: Female

DRUGS (1)
  1. LANTUS SOLOSTAR [Suspect]
     Active Substance: INSULIN GLARGINE
     Dosage: 20 IU NIGHTLY
     Route: 065

REACTIONS (6)
  - Rhinorrhoea [Unknown]
  - Blood glucose increased [Unknown]
  - Hypersensitivity [Unknown]
  - Respiratory disorder [Unknown]
  - Nasal congestion [Unknown]
  - Underdose [Unknown]
